FAERS Safety Report 5530893-6 (Version None)
Quarter: 2007Q4

REPORT INFORMATION
  Report Type: 
  Country: None (occurrence: None)
  Receive Date: 20071130
  Receipt Date: 20071121
  Transmission Date: 20080405
  Serious: Yes (Hospitalization)
  Sender: FDA-Public Use
  Company Number: SE-ASTRAZENECA-2007SE06196

PATIENT
  Age: 33037 Day
  Sex: Female

DRUGS (8)
  1. METOPROLOL SUCCINATE [Suspect]
     Indication: ATRIAL FIBRILLATION
     Route: 048
     Dates: start: 20060101, end: 20070803
  2. DIGOXIN [Suspect]
     Indication: ATRIAL FIBRILLATION
     Dates: start: 20060101, end: 20070803
  3. RAMIPRIL [Suspect]
     Indication: ESSENTIAL HYPERTENSION
     Route: 048
     Dates: start: 20060101, end: 20070803
  4. PAMOL [Concomitant]
  5. FUROSEMIDE [Concomitant]
  6. TROMBYL [Concomitant]
  7. PLENDIL [Concomitant]
  8. TRIOBE [Concomitant]

REACTIONS (3)
  - BLOOD CREATININE INCREASED [None]
  - BRADYCARDIA [None]
  - HYPERKALAEMIA [None]
